FAERS Safety Report 5608883-4 (Version None)
Quarter: 2008Q1

REPORT INFORMATION
  Report Type: 
  Country: None (occurrence: None)
  Receive Date: 20080131
  Receipt Date: 20080121
  Transmission Date: 20080703
  Serious: Yes (Other)
  Sender: FDA-Public Use
  Company Number: RU-ABBOTT-08P-251-0434365-00

PATIENT
  Age: 21 Year
  Sex: Male

DRUGS (4)
  1. DEPAKENE [Suspect]
     Indication: EPILEPSY
     Route: 048
     Dates: start: 20050101
  2. DEPAKENE [Suspect]
     Dates: end: 20050101
  3. TEGRETOL [Suspect]
     Indication: EPILEPSY
     Route: 048
     Dates: start: 20050101
  4. PHENOBARBITAL TAB [Concomitant]
     Indication: EPILEPSY
     Dosage: 25MG IN THE MORNING AND 100MG IN THE EVENING
     Route: 048
     Dates: start: 20050101

REACTIONS (4)
  - ANTICONVULSANT DRUG LEVEL DECREASED [None]
  - DRUG INEFFECTIVE [None]
  - EPILEPSY [None]
  - PHARMACEUTICAL PRODUCT COUNTERFEIT [None]
